FAERS Safety Report 21927110 (Version 1)
Quarter: 2023Q1

REPORT INFORMATION
  Report Type: Spontaneous
  Country: US (occurrence: US)
  Receive Date: 20230130
  Receipt Date: 20230130
  Transmission Date: 20230418
  Serious: No
  Sender: FDA-Public Use
  Company Number: US-SAREPTA THERAPEUTICS INC.-SRP2022-002465

PATIENT
  Age: 4 Year
  Sex: Male
  Weight: 16.33 kg

DRUGS (5)
  1. AMONDYS 45 [Suspect]
     Active Substance: CASIMERSEN
     Indication: Duchenne muscular dystrophy
     Dosage: 500 MILLIGRAM, WEEKLY
     Route: 042
     Dates: start: 20210721, end: 20220809
  2. TYLENOL [Concomitant]
     Active Substance: ACETAMINOPHEN
     Indication: Product used for unknown indication
     Dosage: PRN
     Route: 048
  3. VITAMINS [Concomitant]
     Active Substance: VITAMINS
     Indication: Product used for unknown indication
     Dosage: 3 GUMMIES, QD
     Route: 048
  4. ORAPRED [Concomitant]
     Active Substance: PREDNISOLONE SODIUM PHOSPHATE
     Indication: Product used for unknown indication
     Dosage: 60 MILLIGRAM, TWICE WEEKLY
     Route: 048
     Dates: start: 20220707
  5. ORAPRED [Concomitant]
     Active Substance: PREDNISOLONE SODIUM PHOSPHATE
     Dosage: 75 MILLIGRAM, TWICE WEEKLY

REACTIONS (1)
  - COVID-19 [Unknown]

NARRATIVE: CASE EVENT DATE: 20220815
